FAERS Safety Report 9441628 (Version 2)
Quarter: 2013Q4

REPORT INFORMATION
  Report Type: Spontaneous
  Country: US (occurrence: US)
  Receive Date: 20130806
  Receipt Date: 20131226
  Transmission Date: 20140711
  Serious: Yes (Other)
  Sender: FDA-Public Use
  Company Number: US-PAR PHARMACEUTICAL, INC-2013SCPR006048

PATIENT
  Sex: 0

DRUGS (1)
  1. CHOLESTYRAMINE [Suspect]
     Indication: BLOOD CHOLESTEROL INCREASED
     Dosage: UNK UNK, BID
     Route: 048
     Dates: start: 201307, end: 20130724

REACTIONS (5)
  - Lip swelling [Not Recovered/Not Resolved]
  - Oedema peripheral [Not Recovered/Not Resolved]
  - Pruritus generalised [Not Recovered/Not Resolved]
  - Urticaria [Not Recovered/Not Resolved]
  - Rash [Not Recovered/Not Resolved]
